FAERS Safety Report 7690955-4 (Version None)
Quarter: 2011Q3

REPORT INFORMATION
  Report Type: 
  Country: None (occurrence: None)
  Receive Date: 20110812
  Receipt Date: 20110729
  Transmission Date: 20111222
  Serious: Yes (Death, Other)
  Sender: FDA-Public Use
  Company Number: 2011MA008656

PATIENT
  Age: 37 Year
  Sex: Male

DRUGS (14)
  1. CYCLIZINE [Concomitant]
  2. FERROUS SULFATE TAB [Concomitant]
  3. CLENIL [Concomitant]
  4. MEBEVERINE [Concomitant]
  5. TRAMADOL HYDROCHLORIDE [Suspect]
     Indication: BACK PAIN
     Dosage: 50 MG; QID
     Dates: start: 20100901, end: 20100901
  6. NEFOPAM [Concomitant]
  7. OMEPRAZOLE [Concomitant]
  8. ACETAMINOPHEN [Concomitant]
  9. ALBUTEROL [Concomitant]
  10. FLUOXETINE [Concomitant]
  11. CELECOXIB [Concomitant]
  12. SALMETEROL [Concomitant]
  13. AMITRIPTYLINE HCL [Concomitant]
  14. FELODPINE [Concomitant]

REACTIONS (3)
  - CIRCULATORY COLLAPSE [None]
  - OVERDOSE [None]
  - TOXICITY TO VARIOUS AGENTS [None]
